FAERS Safety Report 23911594 (Version 1)
Quarter: 2024Q2

REPORT INFORMATION
  Report Type: Spontaneous
  Country: US (occurrence: US)
  Receive Date: 20240528
  Receipt Date: 20240528
  Transmission Date: 20240716
  Serious: No
  Sender: FDA-Public Use
  Company Number: US-SA-SAC20240527000387

PATIENT
  Sex: Female
  Weight: 72.12 kg

DRUGS (5)
  1. DUPIXENT [Suspect]
     Active Substance: DUPILUMAB
     Indication: Asthma
     Dosage: 300 MG, QOW
     Route: 058
     Dates: start: 202001
  2. BREZTRI [Concomitant]
     Active Substance: BUDESONIDE\FORMOTEROL\GLYCOPYRROLATE
  3. EPIDIOLEX [Concomitant]
     Active Substance: CANNABIDIOL
  4. EPINEPHRINE [Concomitant]
     Active Substance: EPINEPHRINE
  5. FISH OIL [Concomitant]
     Active Substance: FISH OIL

REACTIONS (6)
  - Cardiac disorder [Unknown]
  - Heart rate irregular [Unknown]
  - Epiretinal membrane [Unknown]
  - Eye disorder [Unknown]
  - Injection site swelling [Recovered/Resolved]
  - Product dose omission issue [Unknown]

NARRATIVE: CASE EVENT DATE: 20240101
